FAERS Safety Report 6932309-1 (Version None)
Quarter: 2010Q3

REPORT INFORMATION
  Report Type: 
  Country: None (occurrence: None)
  Receive Date: 20100819
  Receipt Date: 20100809
  Transmission Date: 20110219
  Serious: Yes (Life-Threatening, Hospitalization)
  Sender: FDA-Public Use
  Company Number: BE-ROCHE-721689

PATIENT
  Sex: Female

DRUGS (9)
  1. TRASTUZUMAB [Suspect]
     Indication: BREAST CANCER
     Route: 042
     Dates: start: 20080918
  2. PACLITAXEL [Suspect]
     Indication: BREAST CANCER
     Route: 065
  3. LISINOPRIL AND HYDROCHLOROTHIAZIDE [Concomitant]
     Dates: start: 20070101
  4. LEVOCETIRIZINE HYDROCHLORIDE [Concomitant]
  5. BROMAZEPAM [Concomitant]
     Dates: start: 20070101
  6. ASPIRIN [Concomitant]
     Dates: start: 20081124
  7. TEBACONE [Concomitant]
     Dosage: REPORTED AS UNKNOWN DRUG TEBACONNE
     Dates: start: 20080918
  8. DOMPERIDONE [Concomitant]
  9. BISOPROLOL [Concomitant]
     Dates: start: 20100801

REACTIONS (1)
  - ATRIAL FIBRILLATION [None]
